FAERS Safety Report 4701239-8 (Version None)
Quarter: 2005Q2

REPORT INFORMATION
  Report Type: 
  Country: None (occurrence: None)
  Receive Date: 20050628
  Receipt Date: 20050520
  Transmission Date: 20051028
  Serious: Yes (Hospitalization, Disabling)
  Sender: FDA-Public Use
  Company Number: JP-MERCK-0505USA03381

PATIENT
  Age: 69 Year
  Sex: Male
  Weight: 51 kg

DRUGS (14)
  1. PEPCID [Suspect]
     Route: 042
     Dates: start: 20050420, end: 20050510
  2. MIDAZOLAM HYDROCHLORIDE [Suspect]
     Indication: SEDATION
     Route: 042
     Dates: start: 20050417, end: 20050502
  3. PLETAL [Concomitant]
     Route: 048
     Dates: end: 20050416
  4. NITRODERM [Concomitant]
     Route: 065
  5. MODACIN [Concomitant]
     Indication: PNEUMONIA
     Route: 042
     Dates: start: 20050417, end: 20050505
  6. INOVAN [Concomitant]
     Indication: HYPERTENSION
     Route: 042
     Dates: start: 20050418
  7. PANALDINE [Concomitant]
     Route: 048
     Dates: end: 20050416
  8. ASPIRIN [Concomitant]
     Route: 048
     Dates: end: 20050416
  9. CALTAN [Concomitant]
     Indication: SECONDARY HYPERTHYROIDISM
     Route: 048
     Dates: end: 20050417
  10. PEPCID [Concomitant]
     Route: 048
     Dates: end: 20050417
  11. LASIX [Concomitant]
     Indication: RENAL FAILURE CHRONIC
     Route: 048
     Dates: end: 20050417
  12. ALLEGRA [Concomitant]
     Route: 048
     Dates: end: 20050417
  13. AMOBAN [Concomitant]
     Indication: INSOMNIA
     Route: 048
     Dates: end: 20050417
  14. ALFAROL [Concomitant]
     Indication: SECONDARY HYPERTHYROIDISM
     Route: 048
     Dates: end: 20050417

REACTIONS (3)
  - DEPRESSED LEVEL OF CONSCIOUSNESS [None]
  - HYPOCALCAEMIA [None]
  - LIVER DISORDER [None]
